FAERS Safety Report 14380157 (Version 2)
Quarter: 2018Q1

REPORT INFORMATION
  Report Type: Spontaneous
  Country: IT (occurrence: IT)
  Receive Date: 20180112
  Receipt Date: 20180125
  Transmission Date: 20180509
  Serious: Yes (Other)
  Sender: FDA-Public Use
  Company Number: IT-ROCHE-2053729

PATIENT
  Age: 69 Year
  Sex: Female

DRUGS (2)
  1. ERIVEDGE [Suspect]
     Active Substance: VISMODEGIB
     Indication: BASAL CELL CARCINOMA
     Route: 048
     Dates: start: 20171002, end: 20171107
  2. ERIVEDGE [Suspect]
     Active Substance: VISMODEGIB
     Route: 048
     Dates: start: 20171114, end: 20171205

REACTIONS (1)
  - Asthenia [Not Recovered/Not Resolved]

NARRATIVE: CASE EVENT DATE: 201711
